FAERS Safety Report 8558629-5 (Version None)
Quarter: 2012Q3

REPORT INFORMATION
  Report Type: 
  Country: None (occurrence: None)
  Receive Date: 20120801
  Receipt Date: 20120720
  Transmission Date: 20120928
  Serious: Yes (Disabling, Other)
  Sender: FDA-Public Use
  Company Number: US-009507513-1205USA02818

PATIENT

DRUGS (2)
  1. PREMARIN [Concomitant]
     Indication: OESTROGEN REPLACEMENT THERAPY
     Dosage: UNK
     Dates: start: 19980101
  2. FOSAMAX [Suspect]
     Indication: PROPHYLAXIS
     Route: 048
     Dates: start: 20010101

REACTIONS (6)
  - IMPAIRED HEALING [None]
  - FEMUR FRACTURE [None]
  - OSTEOPOROSIS [None]
  - STRESS FRACTURE [None]
  - TOOTH FRACTURE [None]
  - LOW TURNOVER OSTEOPATHY [None]
